FAERS Safety Report 8251312-5 (Version None)
Quarter: 2012Q2

REPORT INFORMATION
  Report Type: 
  Country: None (occurrence: None)
  Receive Date: 20120402
  Receipt Date: 20110609
  Transmission Date: 20120825
  Serious: Yes (Hospitalization)
  Sender: FDA-Public Use
  Company Number: US-GLAXOSMITHKLINE-A0933701A

PATIENT
  Age: 71 Year
  Sex: Male

DRUGS (1)
  1. AVANDAMET [Suspect]
     Indication: DIABETES MELLITUS
     Route: 048
     Dates: start: 20050101, end: 20050101

REACTIONS (5)
  - HEADACHE [None]
  - MYOCARDIAL INFARCTION [None]
  - CHEST PAIN [None]
  - DIPLOPIA [None]
  - STENT PLACEMENT [None]
